FAERS Safety Report 24430588 (Version 1)
Quarter: 2024Q4

REPORT INFORMATION
  Report Type: Spontaneous
  Country: US (occurrence: US)
  Receive Date: 20241013
  Receipt Date: 20241013
  Transmission Date: 20250114
  Serious: No
  Sender: AMGEN
  Company Number: US-AMGEN-USASP2024201135

PATIENT
  Sex: Female

DRUGS (3)
  1. TEPEZZA [Suspect]
     Active Substance: TEPROTUMUMAB-TRBW
     Indication: Endocrine ophthalmopathy
     Dosage: EIGHT INFUSIONS TOTAL WITH , Q3WK
     Route: 042
     Dates: start: 2020
  2. LEVOXYL [Concomitant]
     Active Substance: LEVOTHYROXINE SODIUM
  3. XIIDRA [Concomitant]
     Active Substance: LIFITEGRAST

REACTIONS (4)
  - Drug ineffective [Unknown]
  - Surgery [Unknown]
  - Depressed mood [Unknown]
  - Lagophthalmos [Unknown]
